FAERS Safety Report 8302347-5 (Version None)
Quarter: 2012Q2

REPORT INFORMATION
  Report Type: 
  Country: None (occurrence: None)
  Receive Date: 20120420
  Receipt Date: 20120416
  Transmission Date: 20120825
  Serious: Yes (Life-Threatening)
  Sender: FDA-Public Use
  Company Number: FR-ASTRAZENECA-2012SE24964

PATIENT
  Age: 49 Year
  Sex: Male

DRUGS (3)
  1. ROCURONIUM BROMIDE [Suspect]
     Indication: GENERAL ANAESTHESIA
     Route: 042
     Dates: start: 20120320, end: 20120320
  2. DIPRIVAN [Suspect]
     Indication: GENERAL ANAESTHESIA
     Route: 042
     Dates: start: 20120320, end: 20120320
  3. ULTIVA [Suspect]
     Indication: GENERAL ANAESTHESIA
     Route: 042
     Dates: start: 20120320, end: 20120320

REACTIONS (2)
  - CIRCULATORY COLLAPSE [None]
  - ANAPHYLACTIC SHOCK [None]
